FAERS Safety Report 16300106 (Version 1)
Quarter: 2019Q2

REPORT INFORMATION
  Report Type: Spontaneous
  Country: LV (occurrence: LV)
  Receive Date: 20190510
  Receipt Date: 20190510
  Transmission Date: 20190711
  Serious: Yes (Death, Life-Threatening, Hospitalization)
  Sender: FDA-Public Use
  Company Number: LV-TEVA-2019-LV-1045882

PATIENT
  Age: 58 Year
  Sex: Male
  Weight: 110 kg

DRUGS (4)
  1. TRUXAL (CHLORPROTHIXENE) [Suspect]
     Active Substance: CHLORPROTHIXENE
     Route: 048
     Dates: start: 20190404, end: 20190406
  2. MILGAMMA [BENFOTIAMINE;CYANOCOBALAMIN] [Suspect]
     Active Substance: BENFOTIAMINE\CYANOCOBALAMIN
     Route: 030
     Dates: start: 20190404
  3. FINLEPSIN 200 MG TABLETES [Suspect]
     Active Substance: CARBAMAZEPINE
     Route: 048
     Dates: start: 20190404, end: 20190406
  4. ANALGIN (METAMIZOLE SODIUM) [Suspect]
     Active Substance: METAMIZOLE SODIUM
     Route: 030
     Dates: start: 20190404, end: 20190406

REACTIONS (2)
  - Death [Fatal]
  - Toxic epidermal necrolysis [Recovering/Resolving]

NARRATIVE: CASE EVENT DATE: 20190406
